FAERS Safety Report 6636512-X (Version None)
Quarter: 2010Q1

REPORT INFORMATION
  Report Type: 
  Country: None (occurrence: None)
  Receive Date: 20100310
  Receipt Date: 20100222
  Transmission Date: 20100710
  Serious: Yes (Hospitalization, Other)
  Sender: FDA-Public Use
  Company Number: AUR-APL-2010-00557

PATIENT
  Age: 37 Year
  Sex: Male

DRUGS (3)
  1. PENICILLIN [Suspect]
     Indication: NEUROSYPHILIS
     Dosage: IV
     Route: 042
  2. OLANZAPINE [Concomitant]
  3. VALPROATE SODIUM [Concomitant]

REACTIONS (4)
  - DELUSION [None]
  - HALLUCINATION, AUDITORY [None]
  - JARISCH-HERXHEIMER REACTION [None]
  - PARANOIA [None]
